FAERS Safety Report 10332823 (Version 2)
Quarter: 2014Q3

REPORT INFORMATION
  Report Type: Spontaneous
  Country: IT (occurrence: IT)
  Receive Date: 20140722
  Receipt Date: 20140811
  Transmission Date: 20150326
  Serious: Yes (Other)
  Sender: FDA-Public Use
  Company Number: IT-ELI_LILLY_AND_COMPANY-IT201407005413

PATIENT
  Sex: Male
  Weight: 132 kg

DRUGS (2)
  1. ZYPREXA [Suspect]
     Active Substance: OLANZAPINE
     Indication: PSYCHOTIC DISORDER
     Dosage: 5 MG, UNKNOWN
     Route: 065
     Dates: start: 2000, end: 2013
  2. ZYPREXA [Suspect]
     Active Substance: OLANZAPINE
     Indication: PSYCHOTIC DISORDER

REACTIONS (17)
  - Headache [Unknown]
  - Pain in extremity [Unknown]
  - Hepatitis B virus test positive [Unknown]
  - Blood triglycerides increased [Unknown]
  - Obesity [Unknown]
  - Paraesthesia [Unknown]
  - Tongue discolouration [Unknown]
  - Hepatomegaly [Unknown]
  - Carpal tunnel syndrome [Unknown]
  - Polyneuropathy [Unknown]
  - Raynaud^s phenomenon [Unknown]
  - Alanine aminotransferase increased [Unknown]
  - Muscle spasms [Unknown]
  - Back pain [Unknown]
  - Tremor [Unknown]
  - Bladder dilatation [Unknown]
  - Burning feet syndrome [Unknown]

NARRATIVE: CASE EVENT DATE: 2009
